FAERS Safety Report 25038284 (Version 1)
Quarter: 2025Q1

REPORT INFORMATION
  Report Type: Spontaneous
  Country: US (occurrence: US)
  Receive Date: 20250304
  Receipt Date: 20250304
  Transmission Date: 20250409
  Serious: No
  Sender: PFIZER
  Company Number: US-PFIZER INC-PV202300090559

PATIENT
  Age: 75 Year
  Sex: Female

DRUGS (6)
  1. BRAFTOVI [Suspect]
     Active Substance: ENCORAFENIB
     Indication: Malignant melanoma
     Dosage: 450 MG, 1X/DAY (TAKE 6 CAPSULES ONCE DAILY)
     Route: 048
  2. BRAFTOVI [Suspect]
     Active Substance: ENCORAFENIB
     Indication: Malignant melanoma
     Dosage: 300 MG, 1X/DAY (TAKE 4 CAPSULES ONCE DAILY)
     Route: 048
  3. BRAFTOVI [Suspect]
     Active Substance: ENCORAFENIB
     Dosage: 375 MG, DAILY
     Route: 048
  4. MEKTOVI [Suspect]
     Active Substance: BINIMETINIB
     Route: 048
  5. MEKTOVI [Suspect]
     Active Substance: BINIMETINIB
     Dosage: 45 MG, 2X/DAY
     Route: 048
  6. MEKTOVI [Suspect]
     Active Substance: BINIMETINIB
     Dosage: 30 MG, 2X/DAY (TAKE 2 EACH TWO TIMES DAILY)
     Route: 048

REACTIONS (1)
  - Diarrhoea [Unknown]
